FAERS Safety Report 8563859-2 (Version None)
Quarter: 2012Q3

REPORT INFORMATION
  Report Type: 
  Country: None (occurrence: None)
  Receive Date: 20120718
  Receipt Date: 20120713
  Transmission Date: 20120928
  Serious: Yes (Death, Other)
  Sender: FDA-Public Use
  Company Number: 2012032851

PATIENT
  Age: 67 Year
  Sex: Male

DRUGS (1)
  1. VIVAGLOBIN [Suspect]

REACTIONS (1)
  - RESPIRATORY FAILURE [None]
